FAERS Safety Report 9246249 (Version 1)
Quarter: 2013Q2

REPORT INFORMATION
  Report Type: Spontaneous
  Country: RU (occurrence: RU)
  Receive Date: 20130422
  Receipt Date: 20130422
  Transmission Date: 20140414
  Serious: Yes (Hospitalization)
  Sender: FDA-Public Use
  Company Number: RU-ASTRAZENECA-2013SE25319

PATIENT
  Age: 55 Year
  Sex: Male

DRUGS (1)
  1. VIMOVO [Suspect]
     Indication: SCIATICA
     Dosage: NAPROXEN 500 MG + ESOMEPRAZOLE 20 MG DAILY
     Route: 048
     Dates: start: 2013, end: 2013

REACTIONS (5)
  - Haemorrhoidal haemorrhage [Unknown]
  - Dyspepsia [Unknown]
  - Abdominal pain upper [Unknown]
  - Diarrhoea [Unknown]
  - Off label use [Recovered/Resolved]
